FAERS Safety Report 17169169 (Version 1)
Quarter: 2019Q4

REPORT INFORMATION
  Report Type: Spontaneous
  Country: US (occurrence: US)
  Receive Date: 20191217
  Receipt Date: 20191217
  Transmission Date: 20200122
  Serious: No
  Sender: FDA-Public Use
  Company Number: None

PATIENT
  Age: 27 Year
  Sex: Female
  Weight: 65.25 kg

DRUGS (2)
  1. MICROGESTIN 1/20 FE [Concomitant]
  2. NEXPLANON [Suspect]
     Active Substance: ETONOGESTREL
     Indication: CONTRACEPTION

REACTIONS (2)
  - Skin disorder [None]
  - Alopecia [None]

NARRATIVE: CASE EVENT DATE: 20190101
